FAERS Safety Report 13349301 (Version 1)
Quarter: 2017Q1

REPORT INFORMATION
  Report Type: Spontaneous
  Country: FR (occurrence: FR)
  Receive Date: 20170320
  Receipt Date: 20170320
  Transmission Date: 20170428
  Serious: Yes (Other)
  Sender: FDA-Public Use
  Company Number: FR-AUROBINDO-AUR-APL-2017-30867

PATIENT
  Age: 67 Year
  Sex: Male

DRUGS (3)
  1. AMOXICILLINE PANPHARMA [Suspect]
     Active Substance: AMOXICILLIN
     Indication: INTERVERTEBRAL DISCITIS
     Dosage: 4 G, FOUR TIMES/DAY
     Route: 042
     Dates: start: 20170125, end: 20170203
  2. RIFADIN [Suspect]
     Active Substance: RIFAMPIN
     Indication: INTERVERTEBRAL DISCITIS
     Dosage: 600 MG, TWO TIMES A DAY
     Route: 048
     Dates: start: 20170213, end: 20170222
  3. AMOXICILLIN ARROW [Suspect]
     Active Substance: AMOXICILLIN
     Indication: INTERVERTEBRAL DISCITIS
     Dosage: 2 G, FOUR TIMES/DAY
     Route: 048
     Dates: start: 20170203

REACTIONS (1)
  - Hepatic enzyme increased [Recovering/Resolving]

NARRATIVE: CASE EVENT DATE: 20170220
